FAERS Safety Report 4321165-6 (Version None)
Quarter: 2004Q1

REPORT INFORMATION
  Report Type: 
  Country: None (occurrence: None)
  Receive Date: 20040312
  Receipt Date: 20040122
  Transmission Date: 20041129
  Serious: Yes (Hospitalization)
  Sender: FDA-Public Use
  Company Number: S04-USA-00278-01

PATIENT
  Age: 55 Year
  Sex: Female

DRUGS (2)
  1. LEXAPRO [Suspect]
     Indication: IRRITABLE BOWEL SYNDROME
     Dosage: 10 MG QD PO
     Route: 048
     Dates: start: 20030101, end: 20030101
  2. LITHIUM [Concomitant]

REACTIONS (1)
  - MANIA [None]
